FAERS Safety Report 12269797 (Version 1)
Quarter: 2016Q2

REPORT INFORMATION
  Report Type: Spontaneous
  Country: US (occurrence: US)
  Receive Date: 20160415
  Receipt Date: 20160415
  Transmission Date: 20160815
  Serious: No
  Sender: FDA-Public Use
  Company Number: US-CELGENEUS-USA-2016041849

PATIENT
  Sex: Female

DRUGS (1)
  1. REVLIMID [Suspect]
     Active Substance: LENALIDOMIDE
     Indication: NEOPLASM
     Dosage: 15 MILLIGRAM
     Route: 048
     Dates: start: 201508

REACTIONS (1)
  - Skin discolouration [Unknown]
